FAERS Safety Report 6427636-0 (Version None)
Quarter: 2009Q4

REPORT INFORMATION
  Report Type: 
  Country: None (occurrence: None)
  Receive Date: 20091104
  Receipt Date: 20091023
  Transmission Date: 20100525
  Serious: Yes (Other)
  Sender: FDA-Public Use
  Company Number: AT-GILEAD-2009-0024480

PATIENT
  Age: 52 Year
  Sex: Male

DRUGS (51)
  1. VIREAD [Suspect]
     Indication: HIV INFECTION
     Dates: start: 20011213, end: 20061109
  2. STOCRIN [Concomitant]
     Indication: ANTIRETROVIRAL THERAPY
     Dates: start: 20000120, end: 20000323
  3. STOCRIN [Concomitant]
     Dates: start: 20010920, end: 20061109
  4. KALETRA [Concomitant]
     Indication: ANTIRETROVIRAL THERAPY
     Dates: start: 20060113, end: 20061109
  5. KALETRA [Concomitant]
     Dates: start: 20020214, end: 20060113
  6. METOCLOPRAMIDE HYDROCHLORIDE [Concomitant]
     Dates: start: 20040712, end: 20050912
  7. METOCLOPRAMIDE HYDROCHLORIDE [Concomitant]
     Dates: start: 20031222, end: 20040614
  8. METOCLOPRAMIDE HYDROCHLORIDE [Concomitant]
     Dates: start: 20030819, end: 20031217
  9. METOCLOPRAMIDE HYDROCHLORIDE [Concomitant]
     Dates: start: 20021115, end: 20030502
  10. MUCOBENE [Concomitant]
     Dates: start: 20061109, end: 20061201
  11. MUCOBENE [Concomitant]
     Dates: start: 20000222, end: 20000307
  12. MUCOBENE [Concomitant]
     Dates: start: 20030630, end: 20030719
  13. MUCOBENE [Concomitant]
     Dates: start: 20020417, end: 20020428
  14. ZITHROMAX [Concomitant]
     Dates: start: 20030630, end: 20030708
  15. ZITHROMAX [Concomitant]
     Dates: start: 20061030, end: 20061113
  16. CEFTRIAXON [Concomitant]
     Dates: start: 20061030, end: 20061106
  17. PAMITOR [Concomitant]
     Dates: start: 20070522, end: 20070522
  18. PAMITOR [Concomitant]
     Dates: start: 20070205, end: 20070205
  19. PAMITOR [Concomitant]
     Dates: start: 20061109, end: 20061109
  20. PAMITOR [Concomitant]
     Dates: start: 20060516, end: 20060516
  21. PAMITOR [Concomitant]
     Dates: start: 20060215, end: 20060215
  22. PAMITOR [Concomitant]
     Dates: start: 20051116, end: 20051116
  23. PAMITOR [Concomitant]
     Dates: start: 20050817, end: 20050817
  24. PAMITOR [Concomitant]
     Dates: start: 20050504, end: 20050504
  25. PAMITOR [Concomitant]
     Dates: start: 20050209, end: 20050209
  26. PAMITOR [Concomitant]
     Dates: start: 20041110, end: 20041110
  27. REDUCTO-SPEZIAL [Concomitant]
     Dates: start: 20060217, end: 20061206
  28. TROPFEN OLEOVIT [Concomitant]
     Dates: start: 20041021, end: 20061206
  29. OMEC [Concomitant]
     Dates: start: 20040303, end: 20040318
  30. OMEC [Concomitant]
     Dates: start: 20031221, end: 20040303
  31. BUSCOPAN [Concomitant]
     Dates: start: 20031219, end: 20040305
  32. BUSCOPAN [Concomitant]
     Dates: start: 20021115, end: 20021203
  33. ROCALTROL [Concomitant]
     Dates: start: 20040624, end: 20041021
  34. KALIORAL [Concomitant]
     Dates: start: 20040625, end: 20040712
  35. TRITTICO RETARD [Concomitant]
     Dates: start: 20041110, end: 20050117
  36. TRITTICO RETARD [Concomitant]
     Dates: start: 20031217, end: 20041110
  37. CALDVITA KAUTABLETTEN [Concomitant]
     Dates: start: 20040308, end: 20040623
  38. TRAMAL RETARD [Concomitant]
     Dates: start: 20040302, end: 20040614
  39. SEROPRAM [Concomitant]
     Dates: start: 20031217, end: 20041216
  40. SEROPRAM [Concomitant]
     Dates: start: 20000322, end: 20000520
  41. TRAMAL [Concomitant]
     Dates: start: 20040618, end: 20040621
  42. TRAMAL [Concomitant]
     Dates: start: 20040226, end: 20040302
  43. OMEPRAZOLE [Concomitant]
     Dates: start: 20051216, end: 20060325
  44. OMEPRAZOLE [Concomitant]
     Dates: start: 20040621, end: 20040719
  45. URALYT [Concomitant]
     Dates: start: 20040113, end: 20040618
  46. UBRETID [Concomitant]
     Dates: start: 20040224, end: 20040225
  47. LAEVOLAC [Concomitant]
     Dates: start: 20040224, end: 20040622
  48. ABACAVIR [Concomitant]
     Indication: ANTIRETROVIRAL THERAPY
     Dates: start: 19990212, end: 20010906
  49. ABACAVIR [Concomitant]
     Dates: start: 20030617, end: 20050718
  50. EPIVIR [Concomitant]
     Indication: ANTIRETROVIRAL THERAPY
     Dates: start: 19950914, end: 20010905
  51. EPIVIR [Concomitant]
     Dates: start: 20030224, end: 20070718

REACTIONS (4)
  - FANCONI SYNDROME ACQUIRED [None]
  - OSTEOPENIA [None]
  - OSTEOPOROSIS [None]
  - PAIN IN EXTREMITY [None]
